FAERS Safety Report 19323949 (Version 2)
Quarter: 2022Q2

REPORT INFORMATION
  Report Type: Spontaneous
  Country: AU (occurrence: AU)
  Receive Date: 20210528
  Receipt Date: 20220426
  Transmission Date: 20220721
  Serious: Yes (Congenital Anomaly)
  Sender: FDA-Public Use
  Company Number: US-LAT-2152005544962EM

PATIENT

DRUGS (1)
  1. CETIRIZINE HYDROCHLORIDE [Suspect]
     Active Substance: CETIRIZINE HYDROCHLORIDE
     Indication: Product used for unknown indication
     Route: 065

REACTIONS (16)
  - Heart disease congenital [Unknown]
  - Craniosynostosis [Unknown]
  - Neural tube defect [Unknown]
  - Congenital musculoskeletal disorder of limbs [Unknown]
  - Cleft lip and palate [Unknown]
  - Left ventricle outflow tract obstruction [Unknown]
  - Gastroschisis [Unknown]
  - Congenital large intestinal atresia [Unknown]
  - Congenital diaphragmatic hernia [Unknown]
  - Hypospadias [Unknown]
  - Fallot^s tetralogy [Unknown]
  - Oesophageal atresia [Unknown]
  - Right ventricle outflow tract obstruction [Unknown]
  - Truncus arteriosus persistent [Unknown]
  - Anomalous pulmonary venous connection [Unknown]
  - Atrial septal defect [Unknown]
